FAERS Safety Report 15942318 (Version 3)
Quarter: 2019Q2

REPORT INFORMATION
  Report Type: Spontaneous
  Country: US (occurrence: US)
  Receive Date: 20190209
  Receipt Date: 20190410
  Transmission Date: 20190711
  Serious: Yes (Other)
  Sender: FDA-Public Use
  Company Number: US-ASTRAZENECA-2018SF13653

PATIENT
  Age: 20656 Day
  Sex: Female
  Weight: 111.1 kg

DRUGS (31)
  1. NEXIUM [Suspect]
     Active Substance: ESOMEPRAZOLE MAGNESIUM
     Dosage: GENERIC40.0MG UNKNOWN
     Route: 048
     Dates: start: 2015, end: 2017
  2. NEXIUM [Suspect]
     Active Substance: ESOMEPRAZOLE MAGNESIUM
     Dosage: GENERIC40.0MG UNKNOWN
     Route: 048
     Dates: start: 20150413
  3. PRAVASTATIN. [Concomitant]
     Active Substance: PRAVASTATIN
  4. NITROSTAT [Concomitant]
     Active Substance: NITROGLYCERIN
  5. PANTOPRAZOLE [Suspect]
     Active Substance: PANTOPRAZOLE
     Indication: GASTROOESOPHAGEAL REFLUX DISEASE
     Dosage: 40.0MG UNKNOWN
     Route: 065
     Dates: start: 2012
  6. VERAPAMIL [Concomitant]
     Active Substance: VERAPAMIL HYDROCHLORIDE
  7. PRAVASTATIN. [Concomitant]
     Active Substance: PRAVASTATIN
  8. ZANTAC [Concomitant]
     Active Substance: RANITIDINE HYDROCHLORIDE
  9. NEXIUM [Suspect]
     Active Substance: ESOMEPRAZOLE MAGNESIUM
     Route: 048
     Dates: start: 2009, end: 2018
  10. CARAFATE [Suspect]
     Active Substance: SUCRALFATE
     Dosage: 1GM/10ML
     Route: 065
     Dates: start: 20090925
  11. ALPRAZOLAM. [Concomitant]
     Active Substance: ALPRAZOLAM
  12. TEMAZEPAM. [Concomitant]
     Active Substance: TEMAZEPAM
  13. VALSARTAN. [Concomitant]
     Active Substance: VALSARTAN
  14. XANAX [Concomitant]
     Active Substance: ALPRAZOLAM
  15. CLOPIDOGREL [Concomitant]
     Active Substance: CLOPIDOGREL BISULFATE
  16. NEXIUM [Suspect]
     Active Substance: ESOMEPRAZOLE MAGNESIUM
     Dosage: 40.0MG UNKNOWN
     Route: 048
     Dates: start: 2009, end: 2010
  17. OMEPRAZOLE. [Suspect]
     Active Substance: OMEPRAZOLE
     Indication: GASTROOESOPHAGEAL REFLUX DISEASE
     Dosage: 20.0MG UNKNOWN
     Route: 048
     Dates: start: 2012, end: 2018
  18. PREVACID [Suspect]
     Active Substance: LANSOPRAZOLE
     Indication: GASTROOESOPHAGEAL REFLUX DISEASE
     Dosage: GENERIC
     Route: 065
  19. HYDROCODONE [Concomitant]
     Active Substance: HYDROCODONE
  20. VERAPAMIL [Concomitant]
     Active Substance: VERAPAMIL HYDROCHLORIDE
  21. NEXIUM [Suspect]
     Active Substance: ESOMEPRAZOLE MAGNESIUM
     Dosage: 40.0MG UNKNOWN
     Route: 048
     Dates: start: 20090420
  22. EDARBI [Concomitant]
     Active Substance: AZILSARTAN KAMEDOXOMIL
  23. OMEPRAZOLE. [Suspect]
     Active Substance: OMEPRAZOLE
     Indication: GASTROOESOPHAGEAL REFLUX DISEASE
     Dosage: 20.0MG UNKNOWN
     Route: 048
     Dates: start: 20120813
  24. PEPCID [Concomitant]
     Active Substance: FAMOTIDINE
  25. ROLAIDS [Concomitant]
     Active Substance: CALCIUM CARBONATE\MAGNESIUM HYDROXIDE
  26. AMLODIPINE [Concomitant]
     Active Substance: AMLODIPINE BESYLATE
  27. PREVACID [Suspect]
     Active Substance: LANSOPRAZOLE
     Indication: GASTROOESOPHAGEAL REFLUX DISEASE
     Route: 065
  28. PANTOPRAZOLE [Suspect]
     Active Substance: PANTOPRAZOLE
     Indication: GASTROOESOPHAGEAL REFLUX DISEASE
     Dosage: 40.0MG UNKNOWN
     Route: 065
     Dates: start: 20090630
  29. VITAMIN D2 [Concomitant]
     Active Substance: ERGOCALCIFEROL
  30. TUMS [Concomitant]
     Active Substance: CALCIUM CARBONATE
  31. LASIX [Concomitant]
     Active Substance: FUROSEMIDE

REACTIONS (1)
  - Chronic kidney disease [Not Recovered/Not Resolved]

NARRATIVE: CASE EVENT DATE: 20111114
